FAERS Safety Report 9961359 (Version 3)
Quarter: 2014Q1

REPORT INFORMATION
  Report Type: Spontaneous
  Country: US (occurrence: US)
  Receive Date: 20140305
  Receipt Date: 20140326
  Transmission Date: 20141002
  Serious: Yes (Hospitalization, Other)
  Sender: FDA-Public Use
  Company Number: US-JNJFOC-20140216646

PATIENT
  Age: 70 Year
  Sex: Female
  Weight: 77.11 kg

DRUGS (11)
  1. XARELTO [Suspect]
     Indication: PULMONARY THROMBOSIS
     Route: 048
     Dates: start: 2013
  2. XARELTO [Suspect]
     Indication: PULMONARY THROMBOSIS
     Route: 048
     Dates: start: 2013, end: 2013
  3. XARELTO [Suspect]
     Indication: PULMONARY THROMBOSIS
     Route: 048
     Dates: start: 2013, end: 2013
  4. XARELTO [Suspect]
     Indication: PULMONARY EMBOLISM
     Route: 048
     Dates: start: 2013
  5. XARELTO [Suspect]
     Indication: PULMONARY EMBOLISM
     Route: 048
     Dates: start: 2013, end: 2013
  6. XARELTO [Suspect]
     Indication: PULMONARY EMBOLISM
     Route: 048
     Dates: start: 2013, end: 2013
  7. XARELTO [Suspect]
     Indication: THROMBOSIS
     Route: 048
     Dates: start: 2013, end: 2013
  8. XARELTO [Suspect]
     Indication: THROMBOSIS
     Route: 048
     Dates: start: 2013, end: 2013
  9. XARELTO [Suspect]
     Indication: THROMBOSIS
     Route: 048
     Dates: start: 2013
  10. LOPRESSOR [Concomitant]
     Indication: HYPERTENSION
     Route: 048
     Dates: start: 201308
  11. NEXIUM [Concomitant]
     Indication: PROPHYLAXIS
     Route: 065

REACTIONS (5)
  - Atrial fibrillation [Unknown]
  - Gastrooesophageal reflux disease [Not Recovered/Not Resolved]
  - Irritable bowel syndrome [Not Recovered/Not Resolved]
  - Toothache [Not Recovered/Not Resolved]
  - Inappropriate schedule of drug administration [Unknown]
